FAERS Safety Report 24742449 (Version 1)
Quarter: 2024Q4

REPORT INFORMATION
  Report Type: Spontaneous
  Country: US (occurrence: None)
  Receive Date: 20241216
  Receipt Date: 20241216
  Transmission Date: 20250114
  Serious: Yes (Other)
  Sender: Public
  Company Number: None

PATIENT
  Sex: Female

DRUGS (11)
  1. LENALIDOMIDE [Suspect]
     Active Substance: LENALIDOMIDE
     Indication: Plasma cell myeloma
     Dosage: FREQUENCY : DAILY;?
     Dates: start: 20231201
  2. ACETAMINOPHE TAB 500MG [Concomitant]
  3. ASPIRIN LOW TAB 81 MG EC [Concomitant]
  4. GARB/LEVO TAB 25-100MG [Concomitant]
  5. CLONAZEPAM TAB 0.5MG [Concomitant]
  6. DARZALEX SOL 400/20ML [Concomitant]
  7. DIPHENHYDRAM CAP 25MG [Concomitant]
  8. FEXOFENADINE HYDROCHLORIDE [Concomitant]
     Active Substance: FEXOFENADINE HYDROCHLORIDE
  9. FLONASE ALGY SPR 50MCG [Concomitant]
  10. GABAPENTIN CAP 400MG [Concomitant]
  11. LOSARTAN POT TAB 100MG [Concomitant]

REACTIONS (2)
  - Surgery [None]
  - Therapy interrupted [None]
